FAERS Safety Report 25587802 (Version 1)
Quarter: 2025Q3

REPORT INFORMATION
  Report Type: Spontaneous
  Country: EU (occurrence: A1)
  Receive Date: 20250721
  Receipt Date: 20250721
  Transmission Date: 20251020
  Serious: Yes (Death, Hospitalization, Disabling, Other)
  Sender: BRECKENRIDGE PHARMACEUTICAL, INC.
  Company Number: A1-Breckenridge Pharmaceutical, Inc.-2180914

PATIENT
  Sex: Female

DRUGS (13)
  1. OMEPRAZOLE [Suspect]
     Active Substance: OMEPRAZOLE
  2. CLOZAPINE [Suspect]
     Active Substance: CLOZAPINE
  3. ACETYLCYSTEINE [Concomitant]
     Active Substance: ACETYLCYSTEINE
  4. LITHIUM [Suspect]
     Active Substance: LITHIUM
  5. FOLIC ACID [Concomitant]
     Active Substance: FOLIC ACID
  6. Cholecaliferol [Concomitant]
  7. PREDNISOLONE [Concomitant]
     Active Substance: PREDNISOLONE
  8. AMOXICILLIN [Concomitant]
     Active Substance: AMOXICILLIN
  9. ZUCLOPENTHIXOL [Concomitant]
     Active Substance: ZUCLOPENTHIXOL
  10. LOSARTAN [Concomitant]
     Active Substance: LOSARTAN
  11. ALBUTEROL [Concomitant]
     Active Substance: ALBUTEROL
  12. AZITHROMYCIN DIHYDRATE [Concomitant]
     Active Substance: AZITHROMYCIN DIHYDRATE
  13. SERTRALINE [Concomitant]
     Active Substance: SERTRALINE HYDROCHLORIDE

REACTIONS (8)
  - Death [Fatal]
  - Goitre [Unknown]
  - Hyperparathyroidism [Unknown]
  - Diabetes mellitus [Unknown]
  - Mobility decreased [Unknown]
  - Infection [Unknown]
  - Urinary tract infection [Unknown]
  - Chronic obstructive pulmonary disease [Fatal]
